FAERS Safety Report 7238236-7 (Version None)
Quarter: 2011Q1

REPORT INFORMATION
  Report Type: 
  Country: None (occurrence: None)
  Receive Date: 20110121
  Receipt Date: 20110112
  Transmission Date: 20110831
  Serious: Yes (Death)
  Sender: FDA-Public Use
  Company Number: US-SANOFI-AVENTIS-A03200904915

PATIENT
  Age: 81 Year
  Sex: Female
  Weight: 89.9 kg

DRUGS (12)
  1. APAP TAB [Concomitant]
     Indication: PAIN
     Dates: start: 20091006, end: 20091011
  2. MULTAQ [Suspect]
     Dosage: UNIT DOSE: 400 MG
     Route: 048
     Dates: start: 20091008, end: 20091012
  3. METOPROLOL TARTRATE [Concomitant]
     Route: 065
  4. ESOMEPRAZOLE [Concomitant]
     Dates: end: 20091012
  5. AMIODARONE [Concomitant]
     Indication: ATRIAL FIBRILLATION
     Route: 065
  6. PRAVASTATIN [Concomitant]
     Dates: end: 20091010
  7. COUMADIN [Suspect]
     Indication: ATRIAL FIBRILLATION
     Route: 065
  8. LIOTHYRONINE SODIUM [Concomitant]
     Indication: HYPOTHYROIDISM
     Dates: end: 20091012
  9. APAP TAB [Concomitant]
     Dates: start: 20091006, end: 20091011
  10. CITALOPRAM HYDROBROMIDE [Concomitant]
     Indication: DEPRESSION
     Dates: end: 20091011
  11. LASIX [Concomitant]
     Route: 065
     Dates: end: 20091013
  12. LEVOTHYROXINE [Concomitant]
     Indication: HYPOTHYROIDISM
     Dates: end: 20091012

REACTIONS (3)
  - BRONCHOPNEUMONIA [None]
  - INTERNATIONAL NORMALISED RATIO INCREASED [None]
  - HEPATOCELLULAR INJURY [None]
